APPROVED DRUG PRODUCT: QUINAPRIL HYDROCHLORIDE
Active Ingredient: QUINAPRIL HYDROCHLORIDE
Strength: EQ 20MG BASE
Dosage Form/Route: TABLET;ORAL
Application: A076803 | Product #003 | TE Code: AB
Applicant: CHARTWELL RX SCIENCES LLC
Approved: Mar 2, 2005 | RLD: No | RS: No | Type: RX